FAERS Safety Report 8206381-5 (Version None)
Quarter: 2012Q1

REPORT INFORMATION
  Report Type: 
  Country: None (occurrence: None)
  Receive Date: 20120313
  Receipt Date: 20120307
  Transmission Date: 20120608
  Serious: Yes (Other)
  Sender: FDA-Public Use
  Company Number: PHHY2012JP020094

PATIENT
  Sex: Male

DRUGS (3)
  1. VOLTAREN [Suspect]
     Indication: BONE PAIN
     Dosage: AS NECESSARY
     Route: 054
  2. VOLTAREN [Suspect]
     Dosage: 50 MG, TID
     Route: 054
  3. LOXONIN [Concomitant]
     Indication: BONE PAIN
     Dosage: UNK

REACTIONS (3)
  - RIB FRACTURE [None]
  - DIZZINESS [None]
  - VOMITING [None]
